FAERS Safety Report 5247294-0 (Version None)
Quarter: 2007Q1

REPORT INFORMATION
  Report Type: 
  Country: None (occurrence: None)
  Receive Date: 20070227
  Receipt Date: 20070221
  Transmission Date: 20070707
  Serious: Yes (Death, Hospitalization)
  Sender: FDA-Public Use
  Company Number: PHHO2005ES16489

PATIENT
  Age: 73 Year
  Sex: Male

DRUGS (2)
  1. STI 571 VS IFN-ALPHA + CYTARABINE [Suspect]
     Indication: CHRONIC MYELOID LEUKAEMIA
     Dosage: 400 MG, QD
     Route: 048
     Dates: start: 20001214, end: 20050927
  2. STI 571 VS IFN-ALPHA + CYTARABINE [Suspect]
     Dosage: 400 MG, QD
     Route: 048
     Dates: end: 20051113

REACTIONS (4)
  - HAEMATURIA [None]
  - PROSTATECTOMY [None]
  - TRANSITIONAL CELL CARCINOMA [None]
  - URINARY BLADDER EXCISION [None]
